FAERS Safety Report 11021138 (Version 1)
Quarter: 2015Q2

REPORT INFORMATION
  Report Type: Spontaneous
  Country: GB (occurrence: GB)
  Receive Date: 20150413
  Receipt Date: 20150413
  Transmission Date: 20150821
  Serious: Yes (Hospitalization)
  Sender: FDA-Public Use
  Company Number: GB-JNJFOC-20150322563

PATIENT
  Age: 1 Day
  Sex: Female
  Weight: 1.98 kg

DRUGS (12)
  1. HYDROXOCOBALAMIN [Concomitant]
     Active Substance: HYDROXOCOBALAMIN
     Dosage: 6 MG OVER TWO WEEKS AT 34 WEEKS
     Route: 064
  2. CEFUROXIME. [Concomitant]
     Active Substance: CEFUROXIME
     Dosage: 1.5 (UNITS NOT REPORTED)
     Route: 064
  3. ONDANSETRON [Concomitant]
     Active Substance: ONDANSETRON
     Dosage: 8 (UNITS NOT REPORTED)
     Route: 064
  4. CYCLIZINE [Concomitant]
     Active Substance: CYCLIZINE
     Dosage: 50 (UNITS NOT REPORTED)
     Route: 064
  5. CEPHALEXIN. [Concomitant]
     Active Substance: CEPHALEXIN
     Route: 064
  6. SERTRALINE [Suspect]
     Active Substance: SERTRALINE HYDROCHLORIDE
     Indication: DEPRESSED MOOD
     Dosage: 50 (UNITS NOT REPORTED)??CUMULATIVE DOSE TO REACTION ONSET : 6350
     Route: 064
     Dates: start: 20141101, end: 20150306
  7. AUGMENTIN [Concomitant]
     Active Substance: AMOXICILLIN\CLAVULANATE POTASSIUM
     Route: 064
  8. NITROFURANTOIN. [Concomitant]
     Active Substance: NITROFURANTOIN
     Dosage: 100 (UNITS NOT REPORTED)
     Route: 064
  9. SALBUTAMOL [Concomitant]
     Active Substance: ALBUTEROL
     Dosage: 2 (UNITS NOT REPORTED)
     Route: 064
  10. FENTANYL TRANSDERMAL SYSTEM [Suspect]
     Active Substance: FENTANYL
     Indication: PYODERMA GANGRENOSUM
     Dosage: CUMULATIVE DOSE TO FIRST REACTION ONSET: 12100
     Route: 064
     Dates: start: 20130312, end: 20150306
  11. SYMBICORT [Concomitant]
     Active Substance: BUDESONIDE\FORMOTEROL FUMARATE DIHYDRATE
     Dosage: 2 (UNITS NOT REPORTED)
     Route: 064
  12. SERTRALINE [Concomitant]
     Active Substance: SERTRALINE HYDROCHLORIDE
     Dosage: 50 (UNITS NOT REPORTED)
     Route: 064

REACTIONS (3)
  - Foetal exposure during pregnancy [Recovered/Resolved]
  - Drug withdrawal syndrome neonatal [Recovering/Resolving]
  - Drug withdrawal syndrome [Recovering/Resolving]

NARRATIVE: CASE EVENT DATE: 20140308
